FAERS Safety Report 7210090-9 (Version None)
Quarter: 2011Q1

REPORT INFORMATION
  Report Type: 
  Country: None (occurrence: None)
  Receive Date: 20110105
  Receipt Date: 20101222
  Transmission Date: 20110831
  Serious: No
  Sender: FDA-Public Use
  Company Number: US-BAYER-2010-008790

PATIENT
  Sex: Female

DRUGS (2)
  1. MIRENA [Suspect]
     Indication: CONTRACEPTION
     Dosage: UNK
     Route: 015
     Dates: start: 20101117
  2. MIRENA [Suspect]
     Dosage: UNK
     Route: 015
     Dates: start: 20101117, end: 20101222

REACTIONS (2)
  - DEVICE EXPULSION [None]
  - DEVICE DISLOCATION [None]
